FAERS Safety Report 9524937 (Version 1)
Quarter: 2013Q3

REPORT INFORMATION
  Report Type: Spontaneous
  Country: US (occurrence: US)
  Receive Date: 20130916
  Receipt Date: 20130916
  Transmission Date: 20140515
  Serious: Yes (Hospitalization)
  Sender: FDA-Public Use
  Company Number: US-ASTELLAS-2013US009512

PATIENT
  Age: 37 Year
  Sex: Male

DRUGS (1)
  1. PROGRAF [Suspect]
     Indication: ORGAN TRANSPLANT
     Dosage: 2 MG AM AND 1 MG PM
     Route: 048
     Dates: start: 20111019

REACTIONS (1)
  - Hospitalisation [Unknown]
